FAERS Safety Report 8601523-1 (Version None)
Quarter: 2012Q3

REPORT INFORMATION
  Report Type: 
  Country: None (occurrence: None)
  Receive Date: 20120805
  Receipt Date: 20120727
  Transmission Date: 20120928
  Serious: Yes (Other)
  Sender: FDA-Public Use
  Company Number: DKLU1083502

PATIENT
  Age: 34 Month
  Sex: Female

DRUGS (6)
  1. KEPPRA [Concomitant]
  2. ACTH [Concomitant]
  3. SABRIL [Suspect]
     Indication: INFANTILE SPASMS
     Dosage: 500 MG, 1 IN 12 HR, ORAL
     Route: 048
     Dates: start: 20100506
  4. PHENOBARBITAL TAB [Concomitant]
  5. TOPAMAX [Concomitant]
  6. PYRIDOXINE HYDROCHLORIDE [Concomitant]

REACTIONS (1)
  - RETINAL NEOPLASM [None]
